FAERS Safety Report 7133903-8 (Version None)
Quarter: 2010Q4

REPORT INFORMATION
  Report Type: 
  Country: None (occurrence: None)
  Receive Date: 20101203
  Receipt Date: 20101006
  Transmission Date: 20110411
  Serious: No
  Sender: FDA-Public Use
  Company Number: US-BAYER-201022345BCC

PATIENT

DRUGS (1)
  1. ALEVE (CAPLET) [Suspect]
     Indication: MIGRAINE
     Dosage: 220 MG, QD
     Route: 048
     Dates: start: 20101004, end: 20101005

REACTIONS (1)
  - NO ADVERSE EVENT [None]
